FAERS Safety Report 9416670 (Version 1)
Quarter: 2013Q3

REPORT INFORMATION
  Report Type: Spontaneous
  Country: DE (occurrence: None)
  Receive Date: 20130722
  Receipt Date: 20130722
  Transmission Date: 20140515
  Serious: Yes (Hospitalization, Other)
  Sender: FDA-Public Use
  Company Number: COL_13972_2013

PATIENT
  Age: 79 Year
  Sex: Female

DRUGS (2)
  1. ELMEX [Suspect]
     Indication: PRODUCT USED FOR UNKNOWN INDICATION
     Dosage: NI/-2-3 TIMES/ORAL)
     Route: 048
     Dates: start: 20130628
  2. UNSPECIFIED FACE CREAM [Concomitant]

REACTIONS (2)
  - Burning sensation [None]
  - Swelling [None]
